FAERS Safety Report 9033127 (Version 1)
Quarter: 2013Q1

REPORT INFORMATION
  Report Type: Spontaneous
  Country: US (occurrence: US)
  Receive Date: 20130128
  Receipt Date: 20130128
  Transmission Date: 20140127
  Serious: No
  Sender: FDA-Public Use
  Company Number: US-MYLANLABS-2012S1000539

PATIENT
  Age: 74 Year
  Sex: Female
  Weight: 65.77 kg

DRUGS (8)
  1. EXTENDED PHENYTOIN SODIUM CAPSULES, USP [Suspect]
     Indication: CONVULSION
     Route: 048
     Dates: end: 20111222
  2. EXTENDED PHENYTOIN SODIUM CAPSULES, USP [Suspect]
     Indication: CONVULSION
     Route: 048
     Dates: end: 20111222
  3. ASPIRIN [Concomitant]
  4. ALENDRONATE [Concomitant]
     Dates: start: 2006
  5. HYDROCHLOROTHIAZIDE [Concomitant]
     Dates: start: 2009
  6. POTASSIUM CHLORIDE [Concomitant]
     Dates: start: 20111104
  7. CALCIUM [Concomitant]
  8. VITAMIN D [Concomitant]
     Dates: start: 2006

REACTIONS (1)
  - Anticonvulsant drug level decreased [Recovered/Resolved]
